FAERS Safety Report 11412608 (Version 1)
Quarter: 2015Q3

REPORT INFORMATION
  Report Type: Spontaneous
  Country: US (occurrence: US)
  Receive Date: 20150821
  Receipt Date: 20150821
  Transmission Date: 20151125
  Serious: No
  Sender: FDA-Public Use
  Company Number: US-ELI_LILLY_AND_COMPANY-US201205001729

PATIENT
  Sex: Female

DRUGS (2)
  1. HUMULIN 70/30 [Suspect]
     Active Substance: INSULIN HUMAN
     Indication: TYPE 2 DIABETES MELLITUS
     Dosage: 36 U, EACH MORNING
     Dates: start: 2010
  2. HUMULIN 70/30 [Suspect]
     Active Substance: INSULIN HUMAN
     Dosage: 32 U, EACH EVENING
     Dates: start: 2010

REACTIONS (5)
  - Drug ineffective [Unknown]
  - Laryngitis [Unknown]
  - Arthritis [Unknown]
  - Arthropathy [Unknown]
  - Blood glucose fluctuation [Unknown]
